FAERS Safety Report 8004627-X (Version None)
Quarter: 2011Q4

REPORT INFORMATION
  Report Type: 
  Country: None (occurrence: None)
  Receive Date: 20111223
  Receipt Date: 20111215
  Transmission Date: 20120403
  Serious: Yes (Hospitalization)
  Sender: FDA-Public Use
  Company Number: US-JNJFOC-20110407229

PATIENT
  Sex: Male
  Weight: 66.6 kg

DRUGS (5)
  1. ABILIFY [Suspect]
     Indication: AFFECTIVE DISORDER
     Dates: start: 20110101
  2. REMICADE [Suspect]
     Route: 042
     Dates: start: 20090213
  3. REMICADE [Suspect]
     Route: 042
     Dates: start: 20100907
  4. REMICADE [Suspect]
     Indication: INFLAMMATORY BOWEL DISEASE
     Route: 042
     Dates: start: 20101231
  5. MERCAPTOPURINE [Concomitant]

REACTIONS (1)
  - SUICIDAL IDEATION [None]
